FAERS Safety Report 12186405 (Version 1)
Quarter: 2016Q1

REPORT INFORMATION
  Report Type: Spontaneous
  Country: US (occurrence: US)
  Receive Date: 20160317
  Receipt Date: 20160317
  Transmission Date: 20160526
  Serious: Yes (Hospitalization)
  Sender: FDA-Public Use
  Company Number: US-VANDA PHARMACEUTICALS, INC-2016TASUS001143

PATIENT
  Age: 63 Year
  Sex: Male

DRUGS (1)
  1. HETLIOZ [Suspect]
     Active Substance: TASIMELTEON
     Indication: CIRCADIAN RHYTHM SLEEP DISORDER
     Dosage: 20 MG DAILY
     Dates: start: 20141114

REACTIONS (2)
  - Pneumonia [Unknown]
  - Catheter site infection [Unknown]

NARRATIVE: CASE EVENT DATE: 20160227
